FAERS Safety Report 8154163-5 (Version None)
Quarter: 2012Q1

REPORT INFORMATION
  Report Type: 
  Country: None (occurrence: None)
  Receive Date: 20120215
  Receipt Date: 20120209
  Transmission Date: 20120608
  Serious: Yes (Death)
  Sender: FDA-Public Use
  Company Number: ANI_2011_927191

PATIENT
  Age: 45 Year
  Sex: Female

DRUGS (7)
  1. PHENOBARBITAL TAB [Suspect]
  2. UNKNOWN LAXATIVE [Suspect]
  3. METOCLOPRAMIDE (UNSPECIFIED) [Suspect]
  4. CLONAZEPAM [Suspect]
  5. BUTALBITAL [Suspect]
  6. CARISOPRODOL [Suspect]
  7. TIZANIDINE HCL [Suspect]

REACTIONS (2)
  - COMPLETED SUICIDE [None]
  - TOXICITY TO VARIOUS AGENTS [None]
